FAERS Safety Report 21752340 (Version 3)
Quarter: 2023Q2

REPORT INFORMATION
  Report Type: Report from Study
  Country: CA (occurrence: CA)
  Receive Date: 20221220
  Receipt Date: 20230502
  Transmission Date: 20230722
  Serious: Yes (Hospitalization, Other)
  Sender: FDA-Public Use
  Company Number: CA-JNJFOC-20221233666

PATIENT
  Age: 64 Year
  Sex: Male
  Weight: 67 kg

DRUGS (1)
  1. REMICADE [Suspect]
     Active Substance: INFLIXIMAB
     Indication: Crohn^s disease
     Dosage: ON 14-MAR-2023, PATIENT RECEIVED HIS 24 TH INFLIXIMAB INFUSION OF 300 MG AND PARTIAL HARVEY-BRADSHAW
     Route: 042
     Dates: start: 20181206

REACTIONS (6)
  - Endocarditis [Unknown]
  - Bacteraemia [Unknown]
  - Pneumonia [Unknown]
  - Abdominal pain [Unknown]
  - Pain [Unknown]
  - Inappropriate schedule of product administration [Unknown]

NARRATIVE: CASE EVENT DATE: 20221213
